FAERS Safety Report 21217861 (Version 1)
Quarter: 2022Q3

REPORT INFORMATION
  Report Type: Spontaneous
  Country: US (occurrence: None)
  Receive Date: 20220816
  Receipt Date: 20220816
  Transmission Date: 20221027
  Serious: No
  Sender: FDA-Public Use
  Company Number: US-ROCHE-3074986

PATIENT
  Sex: Male

DRUGS (2)
  1. PEGASYS [Suspect]
     Active Substance: PEGINTERFERON ALFA-2A
     Indication: Hepatitis C
     Route: 065
  2. PEGINTRON [Suspect]
     Active Substance: PEGINTERFERON ALFA-2B
     Indication: Hepatitis C
     Route: 065

REACTIONS (4)
  - Hair disorder [Not Recovered/Not Resolved]
  - Lip injury [Not Recovered/Not Resolved]
  - Ingrown hair [Not Recovered/Not Resolved]
  - Herpes zoster [Unknown]
